FAERS Safety Report 16026073 (Version 1)
Quarter: 2019Q1

REPORT INFORMATION
  Report Type: Spontaneous
  Country: US (occurrence: US)
  Receive Date: 20190302
  Receipt Date: 20190302
  Transmission Date: 20190418
  Serious: Yes (Other)
  Sender: FDA-Public Use
  Company Number: US-MALLINCKRODT-T201902012

PATIENT
  Sex: Male

DRUGS (3)
  1. ELAVIL [Suspect]
     Active Substance: AMITRIPTYLINE HYDROCHLORIDE
     Indication: INSOMNIA
     Dosage: 25-30 MG
     Route: 065
  2. RESTORIL [Suspect]
     Active Substance: TEMAZEPAM
     Indication: INSOMNIA
     Dosage: UNK
     Route: 065
  3. TIKOSYN [Suspect]
     Active Substance: DOFETILIDE
     Indication: ATRIAL FIBRILLATION
     Dosage: 500 MCG, UNK
     Route: 065
     Dates: start: 2018

REACTIONS (6)
  - Atrial fibrillation [Unknown]
  - Headache [Unknown]
  - Insomnia [Unknown]
  - Electrocardiogram QT prolonged [Unknown]
  - Torsade de pointes [Unknown]
  - Loss of consciousness [Unknown]
